FAERS Safety Report 7248367-3 (Version None)
Quarter: 2011Q1

REPORT INFORMATION
  Report Type: 
  Country: None (occurrence: None)
  Receive Date: 20110127
  Receipt Date: 20110117
  Transmission Date: 20110831
  Serious: Yes (Hospitalization)
  Sender: FDA-Public Use
  Company Number: US-MYLANLABS-2011S1001079

PATIENT
  Age: 56 Year
  Sex: Female
  Weight: 83.92 kg

DRUGS (2)
  1. FENTANYL TRANSDERMAL SYSTEM [Suspect]
     Indication: PAIN
     Dosage: Q3D
     Route: 062
     Dates: start: 20100601, end: 20110115
  2. PERCOCET [Suspect]
     Indication: PAIN
     Route: 048

REACTIONS (4)
  - WRONG TECHNIQUE IN DRUG USAGE PROCESS [None]
  - WITHDRAWAL SYNDROME [None]
  - UNRESPONSIVE TO STIMULI [None]
  - OVERDOSE [None]
